FAERS Safety Report 4497116-0 (Version None)
Quarter: 2004Q3

REPORT INFORMATION
  Report Type: 
  Country: None (occurrence: None)
  Receive Date: 20040927
  Receipt Date: 20040525
  Transmission Date: 20050211
  Serious: No
  Sender: FDA-Public Use
  Company Number: USA040568567

PATIENT
  Age: 58 Year
  Sex: Male
  Weight: 73 kg

DRUGS (3)
  1. STRATTERA [Suspect]
     Indication: ATTENTION DEFICIT/HYPERACTIVITY DISORDER
     Dosage: 40 MG DAY
     Dates: start: 20040521
  2. LISINOPRIL [Concomitant]
  3. PLAVIX [Concomitant]

REACTIONS (2)
  - COLD SWEAT [None]
  - NAUSEA [None]
